FAERS Safety Report 6227919-3 (Version None)
Quarter: 2009Q2

REPORT INFORMATION
  Report Type: 
  Country: None (occurrence: None)
  Receive Date: 20090612
  Receipt Date: 20090602
  Transmission Date: 20091009
  Serious: Yes (Hospitalization)
  Sender: FDA-Public Use
  Company Number: JP-ROCHE-606933

PATIENT
  Sex: Female
  Weight: 21 kg

DRUGS (17)
  1. TAMIFLU [Suspect]
     Indication: INFLUENZA IMMUNISATION
     Dosage: DRUG REPORTED AS: TAMIFLU DRY SYRUP 3 %
     Route: 048
     Dates: start: 20081212, end: 20081212
  2. TAMIFLU [Suspect]
     Route: 048
     Dates: start: 20081213, end: 20081218
  3. METHOTREXATE [Concomitant]
     Indication: ACUTE LYMPHOCYTIC LEUKAEMIA
     Route: 041
     Dates: start: 20081202, end: 20081203
  4. METHOTREXATE [Concomitant]
     Route: 041
     Dates: start: 20081209, end: 20081210
  5. METHOTREXATE [Concomitant]
     Route: 041
     Dates: start: 20081202, end: 20081202
  6. METHOTREXATE [Concomitant]
     Route: 041
     Dates: start: 20081209, end: 20081209
  7. SOLU-CORTEF [Concomitant]
     Route: 041
     Dates: start: 20081202, end: 20081202
  8. SOLU-CORTEF [Concomitant]
     Route: 041
     Dates: start: 20081209, end: 20081209
  9. LEUCOVORIN CALCIUM [Concomitant]
     Dosage: ROUTE: INTRAVENOUS (NOT OTHERWISE SPECIFIED)
     Route: 050
     Dates: start: 20081203, end: 20081205
  10. LEUCOVORIN CALCIUM [Concomitant]
     Route: 050
     Dates: start: 20081210, end: 20081212
  11. KYTRIL [Concomitant]
     Dosage: DRUG: KYTRIL INJECTION, ROUTE: INJECTABLE (NOT OTHERWISE SPECIFIED)
     Route: 050
     Dates: start: 20081202, end: 20081202
  12. KYTRIL [Concomitant]
     Route: 050
     Dates: start: 20081209, end: 20081209
  13. PANSPORIN [Concomitant]
     Dosage: ROUTE: INJECTABLE (NOT OTHERWISE SPECIFIED)
     Route: 050
     Dates: start: 20081210, end: 20081212
  14. ZOSYN [Concomitant]
     Dosage: ROUTE: INTRAVENOUS (NOT OTHERWISE SPECIFIED).
     Route: 042
     Dates: start: 20081212, end: 20081215
  15. TOBRACIN [Concomitant]
     Dosage: ROUTE: INTRAVENOUS (NOT OTHERWISE SPECIFIED).
     Route: 050
     Dates: start: 20081212, end: 20081214
  16. FUNGIZONE [Concomitant]
     Route: 048
     Dates: start: 20080902
  17. MAGNESIUM HYDROXIDE TAB [Concomitant]
     Dosage: DRUG: MILMAG.
     Route: 048
     Dates: start: 20081215

REACTIONS (3)
  - ASTHENIA [None]
  - CHOREOATHETOSIS [None]
  - PSYCHIATRIC SYMPTOM [None]
